FAERS Safety Report 5706766-2 (Version None)
Quarter: 2008Q2

REPORT INFORMATION
  Report Type: 
  Country: None (occurrence: None)
  Receive Date: 20080415
  Receipt Date: 20080415
  Transmission Date: 20081010
  Serious: No
  Sender: FDA-Public Use
  Company Number: None

PATIENT
  Age: 52 Year
  Sex: Male
  Weight: 102.0593 kg

DRUGS (1)
  1. CHLORHEXIDINE GLUCONATE [Suspect]
     Indication: ANTI-INFECTIVE THERAPY
     Dosage: 0.5 FLUID OUNCE TWICE DAILY PO
     Route: 048
     Dates: start: 20050919, end: 20050922

REACTIONS (1)
  - AGEUSIA [None]
